FAERS Safety Report 8059786-X (Version None)
Quarter: 2012Q1

REPORT INFORMATION
  Report Type: 
  Country: None (occurrence: None)
  Receive Date: 20120120
  Receipt Date: 20120117
  Transmission Date: 20120608
  Serious: Yes (Death, Hospitalization, Other)
  Sender: FDA-Public Use
  Company Number: PHEH2011US02377

PATIENT
  Sex: Male

DRUGS (3)
  1. EXJADE [Suspect]
     Indication: IRON OVERLOAD
     Dosage: 1500 MG, QD
     Route: 048
  2. CHEMOTHERAPEUTICS [Concomitant]
     Dosage: UNK UKN, UNK
  3. AZACITIDINE [Concomitant]
     Dosage: UNK UKN, UNK

REACTIONS (20)
  - METASTASES TO LIVER [None]
  - ABDOMINAL DISCOMFORT [None]
  - VOMITING [None]
  - SEPSIS [None]
  - ANAEMIA [None]
  - THROMBOCYTOPENIA [None]
  - MOUTH ULCERATION [None]
  - DIARRHOEA [None]
  - ASTHENIA [None]
  - NEOPLASM MALIGNANT [None]
  - MOUTH HAEMORRHAGE [None]
  - MYELODYSPLASTIC SYNDROME TRANSFORMATION [None]
  - ACUTE MYELOID LEUKAEMIA [None]
  - WHITE BLOOD CELL COUNT INCREASED [None]
  - ABDOMINAL PAIN UPPER [None]
  - NAUSEA [None]
  - NEOPLASM PROGRESSION [None]
  - PANCYTOPENIA [None]
  - METASTASES TO SPLEEN [None]
  - WEIGHT DECREASED [None]
